FAERS Safety Report 5740666-7 (Version None)
Quarter: 2008Q2

REPORT INFORMATION
  Report Type: 
  Country: None (occurrence: None)
  Receive Date: 20080516
  Receipt Date: 20080509
  Transmission Date: 20081010
  Serious: Yes (Death)
  Sender: FDA-Public Use
  Company Number: CA-WYE-G01085708

PATIENT
  Age: 63 Year
  Sex: Female

DRUGS (8)
  1. TEMSIROLIMUS [Suspect]
     Indication: MANTLE CELL LYMPHOMA REFRACTORY
     Route: 042
     Dates: start: 20070927, end: 20071006
  2. TEMSIROLIMUS [Suspect]
     Indication: BLAST CELL CRISIS
  3. PROCHLORPERAZINE [Concomitant]
     Indication: NAUSEA
     Dosage: EVERY 6 HRS PRN IV OR PO
     Dates: start: 20070925
  4. NAPROSYN [Suspect]
     Indication: PAIN
     Dosage: UNKNOWN
     Route: 048
     Dates: start: 20071002, end: 20071003
  5. IMOVANE [Concomitant]
     Indication: INSOMNIA
     Dosage: UNKNOWN
     Route: 048
     Dates: start: 20070924
  6. LOVENOX [Suspect]
     Indication: PROPHYLAXIS
     Route: 058
     Dates: end: 20071002
  7. ZOFRAN [Concomitant]
     Indication: NAUSEA
     Dosage: TWICE DAILY PO OR IV
     Dates: start: 20070925
  8. PANTOPRAZOLE SODIUM [Concomitant]
     Indication: NAUSEA
     Dosage: DAILY
     Route: 048
     Dates: start: 20070924

REACTIONS (3)
  - CEREBRAL HAEMATOMA [None]
  - HYDROCEPHALUS [None]
  - INTRAVENTRICULAR HAEMORRHAGE [None]
